FAERS Safety Report 25343280 (Version 1)
Quarter: 2025Q2

REPORT INFORMATION
  Report Type: Report from Study
  Country: US (occurrence: US)
  Receive Date: 20250521
  Receipt Date: 20250521
  Transmission Date: 20250716
  Serious: Yes (Hospitalization)
  Sender: EISAI
  Company Number: US-Eisai-EC-2025-189659

PATIENT
  Age: 68 Year
  Sex: Female

DRUGS (3)
  1. LENVIMA [Suspect]
     Active Substance: LENVATINIB
     Indication: Uterine cancer
     Dates: start: 20241206, end: 20250509
  2. LENVIMA [Suspect]
     Active Substance: LENVATINIB
     Dates: start: 20250513
  3. KEYTRUDA [Concomitant]
     Active Substance: PEMBROLIZUMAB
     Indication: Uterine cancer

REACTIONS (3)
  - Upper gastrointestinal haemorrhage [Recovered/Resolved]
  - Haematochezia [Unknown]
  - Dehydration [Unknown]

NARRATIVE: CASE EVENT DATE: 20250509
